FAERS Safety Report 5846764-1 (Version None)
Quarter: 2008Q3

REPORT INFORMATION
  Report Type: 
  Country: None (occurrence: None)
  Receive Date: 20080815
  Receipt Date: 20080804
  Transmission Date: 20090109
  Serious: Yes (Hospitalization, Other)
  Sender: FDA-Public Use
  Company Number: US-MERCK-0805USA00919

PATIENT
  Age: 91 Year
  Sex: Male
  Weight: 84 kg

DRUGS (9)
  1. FOSAMAX [Suspect]
     Indication: OSTEOPOROSIS
     Route: 048
     Dates: start: 19970101, end: 20070101
  2. ALLOPURINOL [Concomitant]
     Route: 065
  3. ASPIRIN [Concomitant]
     Route: 065
  4. TOPROL-XL [Concomitant]
     Route: 065
  5. PREVACID [Concomitant]
     Route: 065
  6. COZAAR [Concomitant]
     Route: 048
  7. ZOCOR [Concomitant]
     Route: 048
  8. ALLEGRA [Concomitant]
     Route: 065
  9. LASIX [Concomitant]
     Route: 065

REACTIONS (16)
  - BACK PAIN [None]
  - COMPRESSION FRACTURE [None]
  - DEAFNESS [None]
  - FATIGUE [None]
  - HAEMORRHAGIC DIATHESIS [None]
  - HYPERTENSION [None]
  - IMPAIRED HEALING [None]
  - JAW FRACTURE [None]
  - NOCTURIA [None]
  - ORAL CAVITY FISTULA [None]
  - OSTEOARTHRITIS [None]
  - OSTEOMYELITIS [None]
  - OSTEONECROSIS [None]
  - ROTATOR CUFF SYNDROME [None]
  - SINUSITIS [None]
  - ULCER [None]
